FAERS Safety Report 18854899 (Version 1)
Quarter: 2021Q1

REPORT INFORMATION
  Report Type: Spontaneous
  Country: NZ (occurrence: NZ)
  Receive Date: 20210205
  Receipt Date: 20210205
  Transmission Date: 20210420
  Serious: Yes (Hospitalization, Other)
  Sender: FDA-Public Use
  Company Number: NZ-ALLERGAN-2105097US

PATIENT
  Sex: Female

DRUGS (1)
  1. BOTOX [Suspect]
     Active Substance: ONABOTULINUMTOXINA
     Indication: PRODUCT USED FOR UNKNOWN INDICATION
     Dosage: UNK, SINGLE
     Dates: start: 201903, end: 201903

REACTIONS (22)
  - Heart rate decreased [Recovering/Resolving]
  - Neuralgia [Recovering/Resolving]
  - Hyperhidrosis [Recovering/Resolving]
  - Botulism [Recovering/Resolving]
  - Illness [Recovering/Resolving]
  - Hypoaesthesia [Recovering/Resolving]
  - Muscular weakness [Recovering/Resolving]
  - Norepinephrine increased [Recovering/Resolving]
  - Paraesthesia [Recovering/Resolving]
  - Heart rate increased [Recovering/Resolving]
  - Neck pain [Recovering/Resolving]
  - Muscle twitching [Recovering/Resolving]
  - Vomiting [Recovering/Resolving]
  - Paranasal sinus discomfort [Recovering/Resolving]
  - Weight decreased [Recovering/Resolving]
  - Anxiety [Recovering/Resolving]
  - Dizziness [Recovering/Resolving]
  - Sinus pain [Recovering/Resolving]
  - Fatigue [Recovering/Resolving]
  - Muscle atrophy [Recovering/Resolving]
  - Dysphagia [Recovering/Resolving]
  - Head discomfort [Recovering/Resolving]

NARRATIVE: CASE EVENT DATE: 2019
